FAERS Safety Report 6400872-5 (Version None)
Quarter: 2009Q4

REPORT INFORMATION
  Report Type: 
  Country: None (occurrence: None)
  Receive Date: 20091009
  Receipt Date: 20090928
  Transmission Date: 20100525
  Serious: Yes (Other)
  Sender: FDA-Public Use
  Company Number: 237199J08USA

PATIENT
  Age: 61 Year
  Sex: Male
  Weight: 159 kg

DRUGS (6)
  1. REBIF [Suspect]
     Indication: MULTIPLE SCLEROSIS
     Dosage: 44 MCG, 3 IN 1 WEEKS, SUBCUTANEOUS
     Route: 058
     Dates: start: 20011215
  2. AGENT ORANGE (ALL OTHER NON-THERAPEUTIC PRODUCTS) [Suspect]
     Dosage: NOT REPORTED, NOT REPORTED, NOT REPORTED
  3. COZAAR [Concomitant]
  4. METOPROLOL (METOPROLOL /00376901/) [Concomitant]
  5. TERAZOSIN HCL [Concomitant]
  6. FUROSEMIDE (FUROSEMIDE /00032601/) [Concomitant]

REACTIONS (2)
  - HODGKIN'S DISEASE [None]
  - NAUSEA [None]
